FAERS Safety Report 9727579 (Version 3)
Quarter: 2014Q1

REPORT INFORMATION
  Report Type: Spontaneous
  Country: FR (occurrence: FR)
  Receive Date: 20131203
  Receipt Date: 20140220
  Transmission Date: 20141002
  Serious: Yes (Congenital Anomaly, Other)
  Sender: FDA-Public Use
  Company Number: FR-ABBVIE-11P-056-0720439-00

PATIENT
  Sex: Female

DRUGS (2)
  1. DEPAKINE [Suspect]
     Indication: MATERNAL EXPOSURE TIMING UNSPECIFIED
     Route: 064
  2. MICROKAPINE [Suspect]
     Indication: MATERNAL EXPOSURE TIMING UNSPECIFIED
     Route: 064

REACTIONS (16)
  - Psychomotor retardation [Unknown]
  - Autism [Unknown]
  - Speech disorder [Unknown]
  - Abnormal behaviour [Unknown]
  - Sleep disorder [Unknown]
  - Facial asymmetry [Unknown]
  - Chromosomal deletion [Unknown]
  - Speech disorder developmental [Unknown]
  - Foetal exposure during pregnancy [Unknown]
  - Agitation [Unknown]
  - Anxiety [Unknown]
  - Stereotypy [Unknown]
  - Ear infection [Unknown]
  - Social problem [Unknown]
  - Frustration [Unknown]
  - Communication disorder [Unknown]
